FAERS Safety Report 4548400-3 (Version None)
Quarter: 2004Q4

REPORT INFORMATION
  Report Type: 
  Country: None (occurrence: None)
  Receive Date: 20041227
  Receipt Date: 20040930
  Transmission Date: 20050328
  Serious: Yes (Hospitalization)
  Sender: FDA-Public Use
  Company Number: 04P-163-0275671-00

PATIENT
  Age: 43 Year
  Sex: Female

DRUGS (11)
  1. HUMIRA [Suspect]
     Indication: RHEUMATOID ARTHRITIS
     Dosage: 40 MG, 1 IN 2 WK, SUBCUTANEOUS
     Route: 058
     Dates: start: 20040101, end: 20040701
  2. HUMIRA [Suspect]
     Indication: SJOGREN'S SYNDROME
     Dosage: 40 MG, 1 IN 2 WK, SUBCUTANEOUS
     Route: 058
     Dates: start: 20040101, end: 20040701
  3. METHOTREXATE SODIUM [Concomitant]
  4. METHYLPREDNISOLONE [Concomitant]
  5. HYDROXYCHLOROQUINE PHOSPHATE [Concomitant]
  6. FOLINIC ACID [Concomitant]
  7. ALENDRONATE SODIUM [Concomitant]
  8. RESTASIS [Concomitant]
  9. SUMATRIPTAN [Concomitant]
  10. CREON [Concomitant]
  11. PAIN PILLS [Concomitant]

REACTIONS (3)
  - DISTURBANCE IN ATTENTION [None]
  - SOMNOLENCE [None]
  - VENOUS THROMBOSIS LIMB [None]
